FAERS Safety Report 9478236 (Version 1)
Quarter: 2013Q3

REPORT INFORMATION
  Report Type: Spontaneous
  Country: US (occurrence: None)
  Receive Date: 20130822
  Receipt Date: 20130822
  Transmission Date: 20140515
  Serious: Yes (Hospitalization)
  Sender: FDA-Public Use
  Company Number: DSU-2013-04312

PATIENT
  Age: 25 Year
  Sex: Female

DRUGS (1)
  1. TRIBENZOR [Suspect]
     Indication: PRODUCT USED FOR UNKNOWN INDICATION
     Dosage: 3600/900/1125 (ONCE), PER ORAL

REACTIONS (4)
  - Overdose [None]
  - Metabolic acidosis [None]
  - Blood glucose increased [None]
  - Hypotension [None]
